FAERS Safety Report 17133375 (Version 1)
Quarter: 2019Q4

REPORT INFORMATION
  Report Type: Spontaneous
  Country: None (occurrence: CN)
  Receive Date: 20191210
  Receipt Date: 20191210
  Transmission Date: 20200122
  Serious: Yes (Other)
  Sender: FDA-Public Use
  Company Number: CN-ORION CORPORATION ORION PHARMA-ENT 2019-0085

PATIENT
  Age: 69 Year
  Sex: Male

DRUGS (4)
  1. MADOPAR [Interacting]
     Active Substance: BENSERAZIDE HYDROCHLORIDE\LEVODOPA
     Indication: PARKINSON^S DISEASE
     Dosage: ADMINISTERED BEFORE THE THREE MEALS
     Route: 048
  2. ENTACAPONE. [Suspect]
     Active Substance: ENTACAPONE
     Indication: PARKINSON^S DISEASE
     Route: 048
  3. MADOPAR [Interacting]
     Active Substance: BENSERAZIDE HYDROCHLORIDE\LEVODOPA
     Dosage: 6 DOSES/DAY
     Route: 048
  4. MADOPAR [Interacting]
     Active Substance: BENSERAZIDE HYDROCHLORIDE\LEVODOPA
     Route: 048

REACTIONS (4)
  - Dyskinesia [Recovered/Resolved]
  - Drug interaction [Unknown]
  - Wrong technique in product usage process [Unknown]
  - Muscle twitching [Recovering/Resolving]
